FAERS Safety Report 24168055 (Version 1)
Quarter: 2024Q3

REPORT INFORMATION
  Report Type: Spontaneous
  Country: US (occurrence: None)
  Receive Date: 20240802
  Receipt Date: 20240802
  Transmission Date: 20241017
  Serious: Yes (Hospitalization)
  Sender: Public
  Company Number: None

PATIENT
  Age: 62 Year
  Sex: Female
  Weight: 88.8 kg

DRUGS (2)
  1. CARBOPLATIN [Suspect]
     Active Substance: CARBOPLATIN
     Dates: end: 20240117
  2. GEMCITABINE HYDROCHLORIDE [Suspect]
     Active Substance: GEMCITABINE HYDROCHLORIDE
     Dates: end: 20240117

REACTIONS (5)
  - Atrial fibrillation [None]
  - Blood pressure fluctuation [None]
  - Embolism [None]
  - Deep vein thrombosis [None]
  - Metastases to central nervous system [None]

NARRATIVE: CASE EVENT DATE: 20240124
